FAERS Safety Report 4837110-0 (Version None)
Quarter: 2005Q4

REPORT INFORMATION
  Report Type: 
  Country: None (occurrence: None)
  Receive Date: 20051122
  Receipt Date: 20051107
  Transmission Date: 20060501
  Serious: No
  Sender: FDA-Public Use
  Company Number: US_0511123912

PATIENT
  Age: 50 Year
  Sex: Male

DRUGS (2)
  1. CYMBALTA [Suspect]
     Dosage: 120 MG DAILY (1/D)
     Dates: start: 20050501
  2. DEPAKOTE [Concomitant]

REACTIONS (2)
  - ANGER [None]
  - HEPATIC ENZYME INCREASED [None]
